FAERS Safety Report 22215379 (Version 1)
Quarter: 2023Q2

REPORT INFORMATION
  Report Type: Spontaneous
  Country: NL (occurrence: NL)
  Receive Date: 20230416
  Receipt Date: 20230416
  Transmission Date: 20230721
  Serious: Yes (Other)
  Sender: FDA-Public Use
  Company Number: NL-LRB-00873742

PATIENT
  Sex: Male
  Weight: 88 kg

DRUGS (1)
  1. AMLODIPINE [Suspect]
     Active Substance: AMLODIPINE BESYLATE
     Indication: Hypertension
     Dosage: 5 MILLIGRAM, ONCE A DAY (1 X PER DAY 1 PIECE)
     Route: 065
     Dates: start: 20230217, end: 20230329

REACTIONS (5)
  - Erectile dysfunction [Unknown]
  - Sexual dysfunction [Unknown]
  - Depressed mood [Unknown]
  - Vision blurred [Recovering/Resolving]
  - Muscle spasms [Recovered/Resolved]
